FAERS Safety Report 19346939 (Version 4)
Quarter: 2021Q3

REPORT INFORMATION
  Report Type: Spontaneous
  Country: GR (occurrence: GR)
  Receive Date: 20210531
  Receipt Date: 20210701
  Transmission Date: 20211014
  Serious: Yes (Other)
  Sender: FDA-Public Use
  Company Number: GR-CELLTRION INC.-2021GR007054

PATIENT

DRUGS (4)
  1. SEROXAT [Concomitant]
     Active Substance: PAROXETINE HYDROCHLORIDE
     Indication: DEPRESSION
  2. MODULAIR [Concomitant]
     Active Substance: MONTELUKAST SODIUM
     Indication: BRONCHITIS
  3. PULMOTON [Concomitant]
     Indication: BRONCHITIS
  4. REMSIMA [Suspect]
     Active Substance: INFLIXIMAB
     Indication: CROHN^S DISEASE
     Dosage: 300 (3X100MG)
     Route: 065

REACTIONS (6)
  - Underdose [Unknown]
  - Lymphadenopathy mediastinal [Unknown]
  - Bronchitis [Unknown]
  - Intentional dose omission [Unknown]
  - Fungal oesophagitis [Not Recovered/Not Resolved]
  - Lymphadenopathy [Unknown]
